FAERS Safety Report 6914111-X (Version None)
Quarter: 2010Q3

REPORT INFORMATION
  Report Type: 
  Country: None (occurrence: None)
  Receive Date: 20100809
  Receipt Date: 20100806
  Transmission Date: 20110219
  Serious: Yes (Death)
  Sender: FDA-Public Use
  Company Number: PHHY2010IN51657

PATIENT
  Age: 15 Year
  Sex: Male

DRUGS (1)
  1. ASUNRA [Suspect]
     Dosage: 2 TAB OF 400MG
     Route: 048

REACTIONS (1)
  - DEATH [None]
